FAERS Safety Report 21309150 (Version 3)
Quarter: 2022Q4

REPORT INFORMATION
  Report Type: Spontaneous
  Country: US (occurrence: US)
  Receive Date: 20220908
  Receipt Date: 20221119
  Transmission Date: 20230113
  Serious: Yes (Hospitalization, Other)
  Sender: FDA-Public Use
  Company Number: US-Blueprint Medicines Corporation-398

PATIENT
  Age: 68 Year
  Sex: Female

DRUGS (2)
  1. AYVAKIT [Suspect]
     Active Substance: AVAPRITINIB
     Indication: Systemic mastocytosis
     Route: 065
     Dates: start: 20221010
  2. AYVAKIT [Suspect]
     Active Substance: AVAPRITINIB
     Route: 065
     Dates: start: 20221010

REACTIONS (11)
  - Laryngitis [Unknown]
  - Hypothyroidism [Unknown]
  - Bradykinesia [Unknown]
  - Dysphonia [Unknown]
  - Fatigue [Unknown]
  - Personality change [Unknown]
  - Arthralgia [Unknown]
  - Thyroid function test abnormal [Unknown]
  - Full blood count decreased [Unknown]
  - Fall [Unknown]
  - Contusion [Unknown]

NARRATIVE: CASE EVENT DATE: 20221027
